FAERS Safety Report 12281192 (Version 3)
Quarter: 2016Q2

REPORT INFORMATION
  Report Type: Report from Study
  Country: CA (occurrence: CA)
  Receive Date: 20160419
  Receipt Date: 20160520
  Transmission Date: 20160815
  Serious: Yes (Other)
  Sender: FDA-Public Use
  Company Number: CA-ABBVIE-16K-028-1608252-00

PATIENT
  Age: 76 Year
  Sex: Male

DRUGS (1)
  1. HUMIRA [Suspect]
     Active Substance: ADALIMUMAB
     Indication: RHEUMATOID ARTHRITIS
     Route: 058
     Dates: start: 20090728

REACTIONS (2)
  - Pain [Recovered/Resolved]
  - Inguinal hernia [Recovering/Resolving]

NARRATIVE: CASE EVENT DATE: 201604
